FAERS Safety Report 24632641 (Version 1)
Quarter: 2024Q4

REPORT INFORMATION
  Report Type: Spontaneous
  Country: CN (occurrence: CN)
  Receive Date: 20241118
  Receipt Date: 20241118
  Transmission Date: 20250115
  Serious: Yes (Hospitalization)
  Sender: GE HEALTHCARE
  Company Number: CN-GE HEALTHCARE-2024CSU013109

PATIENT
  Age: 54 Year
  Sex: Female
  Weight: 58 kg

DRUGS (1)
  1. OMNIPAQUE [Suspect]
     Active Substance: IOHEXOL
     Indication: Imaging procedure
     Dosage: 100 ML, TOTAL
     Route: 040
     Dates: start: 20241107, end: 20241107

REACTIONS (9)
  - Nasal obstruction [Not Recovered/Not Resolved]
  - Face oedema [Recovering/Resolving]
  - Laryngeal oedema [Recovering/Resolving]
  - Dyspnoea [Recovering/Resolving]
  - Dizziness [Unknown]
  - Chest discomfort [Recovering/Resolving]
  - Palpitations [Recovering/Resolving]
  - Eyelid oedema [Not Recovered/Not Resolved]
  - Contrast media allergy [Unknown]

NARRATIVE: CASE EVENT DATE: 20241107
